FAERS Safety Report 10052269 (Version 3)
Quarter: 2014Q2

REPORT INFORMATION
  Report Type: Spontaneous
  Country: PL (occurrence: PL)
  Receive Date: 20140402
  Receipt Date: 20140516
  Transmission Date: 20141212
  Serious: Yes (Hospitalization)
  Sender: FDA-Public Use
  Company Number: PL-AMGEN-POLSP2014021913

PATIENT
  Age: 58 Year
  Sex: Male
  Weight: 63.5 kg

DRUGS (1)
  1. MIMPARA [Suspect]
     Indication: HYPERPARATHYROIDISM SECONDARY
     Dosage: 30 MG, QD
     Route: 048
     Dates: start: 20140318, end: 20140322

REACTIONS (2)
  - Gastrointestinal haemorrhage [Unknown]
  - Haemoglobin decreased [Unknown]
